FAERS Safety Report 6072653-6 (Version None)
Quarter: 2009Q1

REPORT INFORMATION
  Report Type: 
  Country: None (occurrence: None)
  Receive Date: 20090210
  Receipt Date: 20090129
  Transmission Date: 20090719
  Serious: Yes (Other)
  Sender: FDA-Public Use
  Company Number: BR-PFIZER INC-2009164939

PATIENT

DRUGS (4)
  1. SERTRALINE HCL [Suspect]
     Indication: ANXIETY
     Dosage: UNK
     Dates: start: 20050101
  2. FRONTAL [Suspect]
     Indication: ANXIETY
     Dosage: 1 MG, 1X/DAY
     Route: 048
     Dates: start: 20081201
  3. FRONTAL [Suspect]
     Indication: INSOMNIA
  4. CYANOCOBALAMIN/DEXAMETHASONE/ METAMIZOLE SODIUM [Suspect]

REACTIONS (10)
  - ANXIETY [None]
  - BLOOD PRESSURE INCREASED [None]
  - GENERAL PHYSICAL HEALTH DETERIORATION [None]
  - HUNGER [None]
  - INCREASED APPETITE [None]
  - INSOMNIA [None]
  - LEUKOPENIA [None]
  - MENTAL DISORDER [None]
  - MYALGIA [None]
  - NEPHROLITHIASIS [None]
